FAERS Safety Report 18397524 (Version 1)
Quarter: 2020Q4

REPORT INFORMATION
  Report Type: Spontaneous
  Country: US (occurrence: US)
  Receive Date: 20201018
  Receipt Date: 20201018
  Transmission Date: 20210114
  Serious: Yes (Disabling)
  Sender: FDA-Public Use
  Company Number: None

PATIENT
  Age: 73 Year
  Sex: Female
  Weight: 67.5 kg

DRUGS (6)
  1. CENTRUM SILVER FOR WOMEN [Concomitant]
     Active Substance: MINERALS\VITAMINS
  2. VITAMIN D3 [Concomitant]
     Active Substance: CHOLECALCIFEROL
  3. SULFAMETHOXAZOLE [Suspect]
     Active Substance: SULFAMETHOXAZOLE
     Indication: URINARY TRACT INFECTION
     Dosage: ?          OTHER STRENGTH:NOT SHOWN;QUANTITY:1 TABLET(S);?
     Route: 048
     Dates: start: 20200331, end: 20200407
  4. ATORVASTATIN [Concomitant]
     Active Substance: ATORVASTATIN
  5. MAGNESIUM [Concomitant]
     Active Substance: MAGNESIUM
  6. LEVOTHYROXINE. [Concomitant]
     Active Substance: LEVOTHYROXINE

REACTIONS (3)
  - Neck pain [None]
  - Contraindicated product prescribed [None]
  - Vision blurred [None]

NARRATIVE: CASE EVENT DATE: 20200401
